FAERS Safety Report 4557483-6 (Version None)
Quarter: 2005Q1

REPORT INFORMATION
  Report Type: 
  Country: None (occurrence: None)
  Receive Date: 20050103
  Receipt Date: 20040910
  Transmission Date: 20050727
  Serious: Yes (Other)
  Sender: FDA-Public Use
  Company Number: 2004UW19146

PATIENT
  Age: 47 Year
  Sex: Female

DRUGS (6)
  1. CRESTOR [Suspect]
     Dosage: 10 MG QD PO
     Route: 048
  2. PHENERGAN [Concomitant]
  3. PREMARIN/NEZ/ [Concomitant]
  4. METOPROLOL [Concomitant]
  5. ULTRAM [Concomitant]
  6. DIOVAN [Concomitant]

REACTIONS (1)
  - POLLAKIURIA [None]
